FAERS Safety Report 8895429 (Version 1)
Quarter: 2012Q4

REPORT INFORMATION
  Report Type: 
  Country: GB (occurrence: GB)
  Receive Date: 20121107
  Receipt Date: 20121107
  Transmission Date: 20130627
  Serious: Yes (Other)
  Sender: FDA-Public Use
  Company Number: PHHY2012GB100926

PATIENT
  Age: 75 Year
  Sex: Female

DRUGS (4)
  1. SIMVASTATIN [Suspect]
     Dates: start: 20120529
  2. BETA BLOCKING AGENTS [Concomitant]
  3. DIURETICS [Concomitant]
  4. ANTIHYPERTENSIVE DRUGS [Concomitant]

REACTIONS (5)
  - Hallucination [Recovered/Resolved]
  - Abnormal behaviour [Recovered/Resolved]
  - Panic reaction [Not Recovered/Not Resolved]
  - Feeling abnormal [Recovered/Resolved]
  - Middle insomnia [Not Recovered/Not Resolved]
